FAERS Safety Report 8362275-6 (Version None)
Quarter: 2012Q2

REPORT INFORMATION
  Report Type: 
  Country: None (occurrence: None)
  Receive Date: 20120515
  Receipt Date: 20120503
  Transmission Date: 20120825
  Serious: Yes (Hospitalization, Other)
  Sender: FDA-Public Use
  Company Number: US-ELI_LILLY_AND_COMPANY-US201203008489

PATIENT
  Sex: Female
  Weight: 46 kg

DRUGS (8)
  1. MIRALAX [Concomitant]
     Dosage: 17 G, QD
  2. VASOTEC [Concomitant]
     Dosage: 10 MG, QD
  3. RESTORIL [Concomitant]
     Dosage: 30 MG, OTHER
  4. FORTEO [Suspect]
     Indication: OSTEOPOROSIS
     Dosage: UNK, UNKNOWN
     Route: 065
     Dates: start: 20120321
  5. LOPRESSOR [Concomitant]
     Dosage: 25 MG, BID
  6. POTASSIUM CHLORIDE [Concomitant]
     Dosage: 20 UG, QD
  7. CALCIUM W/VITAMIN D                /06836201/ [Concomitant]
  8. TOPROL-XL [Concomitant]
     Dosage: 25 MG, QD

REACTIONS (6)
  - FALL [None]
  - HEAD INJURY [None]
  - CONTUSION [None]
  - GAIT DISTURBANCE [None]
  - HOSPITALISATION [None]
  - REHABILITATION THERAPY [None]
